FAERS Safety Report 6826904-8 (Version None)
Quarter: 2010Q3

REPORT INFORMATION
  Report Type: 
  Country: None (occurrence: None)
  Receive Date: 20100709
  Receipt Date: 20100629
  Transmission Date: 20110219
  Serious: Yes (Hospitalization)
  Sender: FDA-Public Use
  Company Number: CA-ROCHE-712705

PATIENT
  Sex: Female
  Weight: 99 kg

DRUGS (15)
  1. TOCILIZUMAB [Suspect]
     Indication: RHEUMATOID ARTHRITIS
     Dosage: DRUG TEMPORARILY INTERRUPTED, DOSAGE FORM: INFUSION SOLUTION
     Route: 042
     Dates: end: 20100309
  2. BLINDED TOCILIZUMAB [Suspect]
     Indication: RHEUMATOID ARTHRITIS
     Dosage: THERAPY ALREADY COMPLETED, FORM: INFUSION SOLUTION
     Route: 042
     Dates: start: 20080409
  3. METHOTREXATE [Concomitant]
     Dosage: TDD: 25MG/WK
     Dates: start: 20080212
  4. FOLIC ACID [Concomitant]
     Dosage: TDD: 30MG/WK
     Dates: start: 20071001
  5. NAPROXEN [Concomitant]
     Dates: start: 20071030
  6. TYLENOL W/ CODEINE NO. 3 [Concomitant]
     Dosage: 2 TABS PRN
     Dates: start: 20071201
  7. VITAMIN B-12 [Concomitant]
     Dosage: TDD: 100MG/MO
     Dates: start: 19970401
  8. SYNTHROID [Concomitant]
     Dates: start: 20020705
  9. LASIX [Concomitant]
     Dates: start: 20040311
  10. AMITRIPTYLINE HYDROCHLORIDE [Concomitant]
     Dates: start: 20040311
  11. CITALOPRAM HYDROBROMIDE [Concomitant]
     Dates: start: 20051114
  12. PANTOPRAZOLE [Concomitant]
     Dates: start: 20020627
  13. METFORMIN HCL [Concomitant]
     Dates: start: 20071201
  14. PLATINUM COMPOUNDS [Concomitant]
     Dosage: DRUG: PLATINUM 'EASU' IRON EXTRA GENTLE
     Dates: start: 20071001
  15. PREMARIN [Concomitant]
     Dosage: TDD:0.625MG PRN.
     Dates: start: 20080201

REACTIONS (2)
  - STRESS CARDIOMYOPATHY [None]
  - SUBDURAL HAEMATOMA [None]
